FAERS Safety Report 23075049 (Version 2)
Quarter: 2023Q4

REPORT INFORMATION
  Report Type: Other
  Country: US (occurrence: None)
  Receive Date: 20231017
  Receipt Date: 20231019
  Transmission Date: 20240109
  Serious: Yes (Death)
  Sender: FDA-Public Use
  Company Number: US-ROCHE-3440171

PATIENT
  Age: 56 Year
  Sex: Male

DRUGS (1)
  1. CATHFLO ACTIVASE [Suspect]
     Active Substance: ALTEPLASE
     Indication: Acute myocardial infarction
     Dosage: DATE OF SERVICE: 21/SEP/2023
     Route: 065

REACTIONS (2)
  - Death [Fatal]
  - Off label use [Unknown]
